FAERS Safety Report 11864683 (Version 1)
Quarter: 2015Q4

REPORT INFORMATION
  Report Type: Spontaneous
  Country: KR (occurrence: KR)
  Receive Date: 20151223
  Receipt Date: 20151223
  Transmission Date: 20160305
  Serious: Yes (Hospitalization)
  Sender: FDA-Public Use
  Company Number: KR-AMGEN-KORCT2015136520

PATIENT
  Age: 41 Year
  Sex: Female
  Weight: 61.8 kg

DRUGS (39)
  1. FILGRASTIM [Concomitant]
     Active Substance: FILGRASTIM
     Dosage: 150 MUG, UNK
     Route: 058
     Dates: start: 20151120, end: 20151121
  2. CEFOBACTAM [Concomitant]
     Dosage: 2 G, UNK
     Route: 042
     Dates: start: 20150828, end: 20150830
  3. CEFOBACTAM [Concomitant]
     Dosage: 2 G, UNK
     Route: 042
     Dates: start: 20151009, end: 20151011
  4. FILGRASTIM [Concomitant]
     Active Substance: FILGRASTIM
     Dosage: 150 MUG, UNK
     Route: 058
     Dates: start: 20150828, end: 20150830
  5. FILGRASTIM [Concomitant]
     Active Substance: FILGRASTIM
     Dosage: 150 MUG, UNK
     Route: 058
     Dates: start: 20150918, end: 20150919
  6. TOBRAMYCIN. [Concomitant]
     Active Substance: TOBRAMYCIN
     Dosage: 200 MG, UNK
     Route: 042
     Dates: start: 20150828, end: 20150830
  7. G-LASTA [Suspect]
     Active Substance: PEGFILGRASTIM
     Dosage: 6 MG, 1X/3WEEKS
     Route: 058
     Dates: start: 20151025
  8. DOCETAXEL. [Concomitant]
     Active Substance: DOCETAXEL
     Dosage: 115 MG, UNK
     Route: 042
     Dates: start: 20151024, end: 20151024
  9. TOBRAMYCIN. [Concomitant]
     Active Substance: TOBRAMYCIN
     Dosage: 200 MG, UNK
     Route: 042
     Dates: start: 20151120, end: 20151121
  10. G-LASTA [Suspect]
     Active Substance: PEGFILGRASTIM
     Indication: FEBRILE NEUTROPENIA
     Dosage: 6 MG, 1X/3WEEKS
     Route: 058
     Dates: start: 20150823
  11. G-LASTA [Suspect]
     Active Substance: PEGFILGRASTIM
     Dosage: 6 MG, 1X/3WEEKS
     Route: 058
     Dates: start: 20150913
  12. G-LASTA [Suspect]
     Active Substance: PEGFILGRASTIM
     Dosage: 6 MG, 1X/3WEEKS
     Route: 058
     Dates: start: 20151004
  13. DOCETAXEL. [Concomitant]
     Active Substance: DOCETAXEL
     Dosage: 102 MG, UNK
     Route: 042
     Dates: start: 20151205, end: 20151205
  14. DOXORUBICIN [Concomitant]
     Active Substance: DOXORUBICIN
     Dosage: 68 MG, UNK
     Route: 042
     Dates: start: 20151205, end: 20151205
  15. CYCLOPHOSPHAMIDE. [Concomitant]
     Active Substance: CYCLOPHOSPHAMIDE
     Dosage: 769 MG, UNK
     Route: 042
     Dates: start: 20151003, end: 20151003
  16. TOBRAMYCIN. [Concomitant]
     Active Substance: TOBRAMYCIN
     Dosage: 200 MG, UNK
     Route: 042
     Dates: start: 20150918, end: 20150919
  17. DOCETAXEL. [Concomitant]
     Active Substance: DOCETAXEL
     Dosage: 128 MG, UNK
     Route: 042
     Dates: start: 20150822, end: 20150822
  18. DOXORUBICIN [Concomitant]
     Active Substance: DOXORUBICIN
     Dosage: 76.5 MG, UNK
     Route: 042
     Dates: start: 20151003, end: 20151003
  19. DOXORUBICIN [Concomitant]
     Active Substance: DOXORUBICIN
     Dosage: 68 MG, UNK
     Route: 042
     Dates: start: 20151114, end: 20151114
  20. CYCLOPHOSPHAMIDE. [Concomitant]
     Active Substance: CYCLOPHOSPHAMIDE
     Dosage: 684 MG, UNK
     Route: 042
     Dates: start: 20151114, end: 20151114
  21. G-LASTA [Suspect]
     Active Substance: PEGFILGRASTIM
     Dosage: 6 MG, 1X/3WEEKS
     Route: 058
     Dates: start: 20151206
  22. DOCETAXEL. [Concomitant]
     Active Substance: DOCETAXEL
     Dosage: 102 MG, UNK
     Route: 042
     Dates: start: 20151114, end: 20151114
  23. DOXORUBICIN [Concomitant]
     Active Substance: DOXORUBICIN
     Dosage: 85 MG, UNK
     Route: 042
     Dates: start: 20150822, end: 20150822
  24. CYCLOPHOSPHAMIDE. [Concomitant]
     Active Substance: CYCLOPHOSPHAMIDE
     Dosage: 855 MG, UNK
     Route: 042
     Dates: start: 20150912, end: 20150912
  25. CYCLOPHOSPHAMIDE. [Concomitant]
     Active Substance: CYCLOPHOSPHAMIDE
     Dosage: 769 MG, UNK
     Route: 042
     Dates: start: 20151024, end: 20151024
  26. FILGRASTIM [Concomitant]
     Active Substance: FILGRASTIM
     Dosage: 150 MUG, UNK
     Route: 058
     Dates: start: 20151009, end: 20151011
  27. CEFOBACTAM [Concomitant]
     Dosage: 2 G, UNK
     Route: 042
     Dates: start: 20151120, end: 20151121
  28. TOBRAMYCIN. [Concomitant]
     Active Substance: TOBRAMYCIN
     Dosage: 200 MG, UNK
     Route: 042
     Dates: start: 20151030, end: 20151101
  29. G-LASTA [Suspect]
     Active Substance: PEGFILGRASTIM
     Dosage: 6 MG, 1X/3WEEKS
     Route: 058
     Dates: start: 20151115
  30. DOCETAXEL. [Concomitant]
     Active Substance: DOCETAXEL
     Dosage: 128 MG, UNK
     Route: 042
     Dates: start: 20150912, end: 20150912
  31. CYCLOPHOSPHAMIDE. [Concomitant]
     Active Substance: CYCLOPHOSPHAMIDE
     Dosage: 684 MG, UNK
     Route: 042
     Dates: start: 20151205, end: 20151205
  32. FILGRASTIM [Concomitant]
     Active Substance: FILGRASTIM
     Dosage: 150 MUG, UNK
     Route: 058
     Dates: start: 20151030, end: 20151101
  33. CEFOBACTAM [Concomitant]
     Dosage: 2 G, UNK
     Route: 042
     Dates: start: 20150918
  34. DOCETAXEL. [Concomitant]
     Active Substance: DOCETAXEL
     Dosage: 115 MG, UNK
     Route: 042
     Dates: start: 20151003, end: 20151003
  35. DOXORUBICIN [Concomitant]
     Active Substance: DOXORUBICIN
     Dosage: 85 MG, UNK
     Route: 042
     Dates: start: 20150912, end: 20150912
  36. DOXORUBICIN [Concomitant]
     Active Substance: DOXORUBICIN
     Dosage: 76.5 MG, UNK
     Route: 042
     Dates: start: 20151024, end: 20151024
  37. CYCLOPHOSPHAMIDE. [Concomitant]
     Active Substance: CYCLOPHOSPHAMIDE
     Dosage: 855 MG, UNK
     Route: 042
     Dates: start: 20150822, end: 20150822
  38. CEFOBACTAM [Concomitant]
     Dosage: 2 G, UNK
     Route: 042
     Dates: start: 20151030, end: 20151101
  39. TOBRAMYCIN. [Concomitant]
     Active Substance: TOBRAMYCIN
     Dosage: 200 MG, UNK
     Route: 042
     Dates: start: 20151009, end: 20151011

REACTIONS (1)
  - Febrile neutropenia [Recovered/Resolved]

NARRATIVE: CASE EVENT DATE: 20151211
